FAERS Safety Report 9556928 (Version 4)
Quarter: 2013Q4

REPORT INFORMATION
  Report Type: Spontaneous
  Country: NO (occurrence: NO)
  Receive Date: 20130926
  Receipt Date: 20131224
  Transmission Date: 20140711
  Serious: Yes (Hospitalization)
  Sender: FDA-Public Use
  Company Number: NO-IPSEN BIOPHARMACEUTICALS, INC.-2013-2002

PATIENT
  Age: 33 Year
  Sex: Female
  Weight: 45 kg

DRUGS (1)
  1. AZZALURE [Suspect]
     Indication: SKIN WRINKLING
     Dosage: 31 UNITS
     Route: 065
     Dates: start: 20130416, end: 20130416

REACTIONS (56)
  - Neuralgia [Recovering/Resolving]
  - Eye pain [Recovering/Resolving]
  - Hypoaesthesia [Recovering/Resolving]
  - Musculoskeletal stiffness [Recovering/Resolving]
  - Dyspnoea [Recovering/Resolving]
  - Sensory disturbance [Recovering/Resolving]
  - Cold sweat [Recovering/Resolving]
  - Burning sensation [Recovering/Resolving]
  - Balance disorder [Unknown]
  - Hyperaesthesia [Recovering/Resolving]
  - Arrhythmia [Unknown]
  - Panic attack [Unknown]
  - Aphagia [Unknown]
  - Muscle spasms [Unknown]
  - Nausea [Recovering/Resolving]
  - Neck pain [Recovering/Resolving]
  - Contusion [Recovering/Resolving]
  - Dizziness [Unknown]
  - Toothache [Unknown]
  - Pain [Unknown]
  - Amnesia [Unknown]
  - Tinnitus [Unknown]
  - Head discomfort [Recovering/Resolving]
  - Fatigue [Recovering/Resolving]
  - Eye swelling [Recovering/Resolving]
  - Vision blurred [Recovering/Resolving]
  - Headache [Recovering/Resolving]
  - Diplopia [Unknown]
  - Contusion [Unknown]
  - Discomfort [Unknown]
  - Hypoaesthesia [Recovering/Resolving]
  - Back pain [Recovering/Resolving]
  - Insomnia [Recovering/Resolving]
  - Chills [Unknown]
  - Acne [Recovering/Resolving]
  - Abdominal discomfort [Unknown]
  - Incontinence [Unknown]
  - Mental impairment [Unknown]
  - Mydriasis [Unknown]
  - Nasal discomfort [Unknown]
  - Spinal pain [Unknown]
  - Movement disorder [Unknown]
  - Weight decreased [Unknown]
  - Alopecia [Unknown]
  - Ear pain [Unknown]
  - Deafness unilateral [Unknown]
  - Conversion disorder [Unknown]
  - Chills [Unknown]
  - Musculoskeletal stiffness [Unknown]
  - Musculoskeletal stiffness [Unknown]
  - Pain [Unknown]
  - Abasia [Unknown]
  - Swelling [Unknown]
  - Rash [Recovering/Resolving]
  - Wrong technique in drug usage process [Unknown]
  - Overdose [Unknown]
